FAERS Safety Report 24726954 (Version 1)
Quarter: 2024Q4

REPORT INFORMATION
  Report Type: Spontaneous
  Country: FR (occurrence: FR)
  Receive Date: 20241212
  Receipt Date: 20241212
  Transmission Date: 20250115
  Serious: Yes (Other)
  Sender: MYLAN
  Company Number: None

PATIENT
  Age: 39 Year
  Sex: Female
  Weight: 107 kg

DRUGS (8)
  1. SUFENTANIL CITRATE [Suspect]
     Active Substance: SUFENTANIL CITRATE
     Indication: Induction of anaesthesia
     Dosage: 20 MICROGRAM, TOTAL
     Route: 042
     Dates: start: 20241108
  2. NOREPINEPHRINE BITARTRATE [Suspect]
     Active Substance: NOREPINEPHRINE BITARTRATE
     Indication: Hypotension
     Dosage: UNK
     Route: 042
     Dates: start: 20241108
  3. ROCURONIUM [Suspect]
     Active Substance: ROCURONIUM BROMIDE
     Indication: Induction of anaesthesia
     Dosage: 100 MILLIGRAM, TOTAL
     Route: 042
     Dates: start: 20241108
  4. DEXAMETHASONE [Suspect]
     Active Substance: DEXAMETHASONE
     Indication: Induction of anaesthesia
     Dosage: 8 MILLIGRAM, TOTAL
     Route: 042
     Dates: start: 20241108
  5. KETAMINE [Suspect]
     Active Substance: KETAMINE
     Indication: Induction of anaesthesia
     Dosage: 20 MICROGRAM, TOTAL
     Route: 042
     Dates: start: 20241108
  6. PROPOFOL LIPURO [Suspect]
     Active Substance: PROPOFOL
     Indication: Induction of anaesthesia
     Dosage: 150 MILLIGRAM, TOTAL
     Route: 042
     Dates: start: 20241108
  7. DROPERIDOL [Suspect]
     Active Substance: DROPERIDOL
     Indication: Induction of anaesthesia
     Dosage: 1.25 MILLIGRAM, TOTAL
     Route: 042
     Dates: start: 20241108
  8. CEFOXITIN SODIUM [Suspect]
     Active Substance: CEFOXITIN SODIUM
     Indication: Antibiotic prophylaxis
     Dosage: 2 GRAM
     Route: 042
     Dates: start: 20241108

REACTIONS (1)
  - Urticaria [Recovered/Resolved]

NARRATIVE: CASE EVENT DATE: 20241108
